FAERS Safety Report 16839029 (Version 3)
Quarter: 2019Q3

REPORT INFORMATION
  Report Type: Report from Study
  Country: JP (occurrence: JP)
  Receive Date: 20190923
  Receipt Date: 20190923
  Transmission Date: 20191005
  Serious: Yes (Death)
  Sender: FDA-Public Use
  Company Number: JP-PFIZER INC-2019395850

PATIENT

DRUGS (5)
  1. FLUOROURACIL 5 FU [Suspect]
     Active Substance: FLUOROURACIL
     Indication: ADENOCARCINOMA PANCREAS
     Dosage: 400 MG/M2, CYCLIC(OVER 5 MINUTES)
     Route: 040
  2. IRINOTECAN HCL [Suspect]
     Active Substance: IRINOTECAN HYDROCHLORIDE
     Indication: ADENOCARCINOMA PANCREAS
     Dosage: 180 MG/M2, CYCLIC (INFUSION OVER 90 MINUTES)
  3. LEVOLEUCOVORIN CALCIUM. [Suspect]
     Active Substance: LEVOLEUCOVORIN CALCIUM
     Indication: ADENOCARCINOMA PANCREAS
     Dosage: 200 MG/M2, CYCLIC(INFUSION OVER 2 HOURS)
  4. FLUOROURACIL 5 FU [Suspect]
     Active Substance: FLUOROURACIL
     Dosage: 2400 MG/M2, CYCLIC(CONTINUOUS INFUSION OVER 46 HOURS)
  5. OXALIPLATIN. [Suspect]
     Active Substance: OXALIPLATIN
     Indication: ADENOCARCINOMA PANCREAS
     Dosage: 85 MG/M2, CYCLIC (INFUSION OVER 2 HOURS)

REACTIONS (3)
  - Liver abscess [Fatal]
  - Febrile neutropenia [Fatal]
  - Sepsis [Fatal]
